FAERS Safety Report 9838576 (Version 3)
Quarter: 2014Q1

REPORT INFORMATION
  Report Type: Spontaneous
  Country: IT (occurrence: IT)
  Receive Date: 20140123
  Receipt Date: 20140319
  Transmission Date: 20141002
  Serious: Yes (Hospitalization)
  Sender: FDA-Public Use
  Company Number: IT-PFIZER INC-2014021069

PATIENT
  Age: 80 Year
  Sex: Female

DRUGS (6)
  1. XANAX [Suspect]
     Indication: INSOMNIA
     Dosage: UNK
     Route: 048
     Dates: start: 20140115, end: 20140115
  2. VALSARTAN [Concomitant]
     Dosage: UNK
  3. VENLAFAXINE [Concomitant]
     Dosage: UNK
  4. TRICORTIN [Concomitant]
     Dosage: UNK
  5. TOLEP [Concomitant]
     Dosage: UNK
  6. CARDIOASPIRIN [Concomitant]
     Dosage: UNK

REACTIONS (5)
  - Intentional overdose [Recovering/Resolving]
  - Bradykinesia [Recovering/Resolving]
  - Bradyphrenia [Recovering/Resolving]
  - Sopor [Recovering/Resolving]
  - Off label use [Recovered/Resolved]
